FAERS Safety Report 14618690 (Version 1)
Quarter: 2018Q1

REPORT INFORMATION
  Report Type: Spontaneous
  Country: DE (occurrence: DE)
  Receive Date: 20180309
  Receipt Date: 20180309
  Transmission Date: 20180509
  Serious: Yes (Other)
  Sender: FDA-Public Use
  Company Number: DE-ASTELLAS-2018US009250

PATIENT
  Sex: Male

DRUGS (21)
  1. EFEROX [Concomitant]
     Active Substance: LEVOTHYROXINE SODIUM
     Indication: PRODUCT USED FOR UNKNOWN INDICATION
     Dosage: UNK UNK, ONCE DAILY
     Route: 065
  2. ELIQUIS [Concomitant]
     Active Substance: APIXABAN
     Indication: PRODUCT USED FOR UNKNOWN INDICATION
     Route: 065
  3. TORASEMID-1A PHARMA [Concomitant]
     Active Substance: TORSEMIDE
     Indication: PRODUCT USED FOR UNKNOWN INDICATION
     Route: 065
  4. NOVAMINSULFON 1 A PHARMA [Concomitant]
     Indication: PRODUCT USED FOR UNKNOWN INDICATION
     Route: 065
  5. CALCIUM AL [Concomitant]
     Indication: PRODUCT USED FOR UNKNOWN INDICATION
     Route: 065
  6. URBASON                            /00049601/ [Concomitant]
     Active Substance: METHYLPREDNISOLONE
     Indication: PRODUCT USED FOR UNKNOWN INDICATION
     Dosage: HALF DOSE, ONCE DAILY
     Route: 065
  7. RAMIPRIL. [Concomitant]
     Active Substance: RAMIPRIL
     Indication: PRODUCT USED FOR UNKNOWN INDICATION
     Route: 065
  8. LORATADINE 1A PHARMA [Concomitant]
     Indication: PRURITUS
     Route: 065
  9. NOVALGIN                           /00169801/ [Interacting]
     Active Substance: ACETAMINOPHEN\CAFFEINE\PROPYPHENAZONE
     Indication: SURGERY
     Dosage: UNK UNK, THRICE DAILY (6 AM, 2 PM AND 10 PM)
     Route: 065
  10. MYFORTIC [Concomitant]
     Active Substance: MYCOPHENOLATE SODIUM
     Indication: PRODUCT USED FOR UNKNOWN INDICATION
     Route: 065
  11. BISOPROLOL SANDOZ [Concomitant]
     Active Substance: BISOPROLOL
     Indication: PRODUCT USED FOR UNKNOWN INDICATION
     Dosage: 0.5 DF, TWICE DAILY
     Route: 065
  12. PANTOZOL [Concomitant]
     Active Substance: PANTOPRAZOLE SODIUM
     Indication: PRODUCT USED FOR UNKNOWN INDICATION
     Route: 065
  13. MUCOFALK ORANGE [Concomitant]
     Active Substance: HERBALS\PLANTAGO OVATA LEAF
     Indication: PRODUCT USED FOR UNKNOWN INDICATION
     Dosage: UNK UNK, ONCE DAILY
     Route: 065
  14. NOVAMINSULFON LICHTENSTEIN [Interacting]
     Active Substance: METAMIZOLE SODIUM
     Indication: PAIN
     Dosage: 1000 MG, EVERY 6 HOURS
     Route: 048
     Dates: start: 20180126, end: 20180213
  15. TILIDIN [Concomitant]
     Active Substance: NALOXONE HYDROCHLORIDE\TILIDINE HYDROCHLORIDE
     Indication: PRODUCT USED FOR UNKNOWN INDICATION
     Route: 065
  16. SODERM [Concomitant]
     Indication: PRURITUS
     Dosage: UNK UNK, ONCE DAILY
     Route: 065
  17. PROGRAF [Interacting]
     Active Substance: TACROLIMUS\TACROLIMUS ANHYDROUS
     Dosage: 2 MG AND 2.5 MG, TWICE DAILY
     Route: 065
  18. AMLODIPIN 1A PHARMA GMBH [Concomitant]
     Active Substance: AMLODIPINE BESYLATE
     Indication: PRODUCT USED FOR UNKNOWN INDICATION
     Route: 065
  19. PROGRAF [Suspect]
     Active Substance: TACROLIMUS\TACROLIMUS ANHYDROUS
     Indication: PRODUCT USED FOR UNKNOWN INDICATION
     Dosage: 2 MG, TWICE DAILY (10 AM AND 10 PM)
     Route: 065
  20. PRAVASTATIN 1A PHARMA GMBH [Concomitant]
     Indication: PRODUCT USED FOR UNKNOWN INDICATION
     Route: 065
  21. CALCITRIOL KYRAMED [Concomitant]
     Indication: PRODUCT USED FOR UNKNOWN INDICATION
     Dosage: 0.5 UG, ONCE DAILY
     Route: 065

REACTIONS (18)
  - Shunt occlusion [Unknown]
  - Aortic arteriosclerosis [Unknown]
  - Hypertrophic cardiomyopathy [Unknown]
  - Hypertension [Unknown]
  - Tremor [Unknown]
  - Abdominal hernia [Unknown]
  - Immunosuppressant drug level decreased [Recovered/Resolved]
  - Diabetic retinopathy [Unknown]
  - Toxicity to various agents [Unknown]
  - Coronary artery disease [Unknown]
  - Shunt aneurysm [Unknown]
  - Drug interaction [Unknown]
  - Histology abnormal [Unknown]
  - Atrial flutter [Unknown]
  - Immunosuppressant drug level increased [Unknown]
  - Atrial fibrillation [Unknown]
  - Renal cyst [Unknown]
  - Hypercholesterolaemia [Unknown]

NARRATIVE: CASE EVENT DATE: 200408
